FAERS Safety Report 5021119-0 (Version None)
Quarter: 2006Q2

REPORT INFORMATION
  Report Type: 
  Country: None (occurrence: None)
  Receive Date: 20060607
  Receipt Date: 20060607
  Transmission Date: 20061013
  Serious: Yes (Other)
  Sender: FDA-Public Use
  Company Number: None

PATIENT
  Age: 39 Year
  Sex: Male
  Weight: 79.3795 kg

DRUGS (1)
  1. CIPRO [Suspect]
     Indication: PROPHYLAXIS
     Dosage: 1      1    PO
     Route: 048
     Dates: start: 20050928, end: 20050928

REACTIONS (11)
  - BURNING SENSATION [None]
  - FATIGUE [None]
  - MUSCLE SPASMS [None]
  - MUSCULAR WEAKNESS [None]
  - NEUROPATHY PERIPHERAL [None]
  - PAIN IN EXTREMITY [None]
  - PARAESTHESIA [None]
  - TENDON DISORDER [None]
  - TENDONITIS [None]
  - TONGUE GEOGRAPHIC [None]
  - VASCULITIS [None]
